FAERS Safety Report 23624101 (Version 1)
Quarter: 2024Q1

REPORT INFORMATION
  Report Type: Spontaneous
  Country: HU (occurrence: HU)
  Receive Date: 20240312
  Receipt Date: 20240312
  Transmission Date: 20240409
  Serious: Yes (Other)
  Sender: FDA-Public Use
  Company Number: HU-002147023-NVSC2024HU050877

PATIENT
  Age: 63 Year
  Sex: Male

DRUGS (5)
  1. DABRAFENIB [Suspect]
     Active Substance: DABRAFENIB
     Indication: Metastatic malignant melanoma
     Dosage: UNK
     Route: 065
     Dates: start: 202103, end: 20210503
  2. TRAMETINIB [Suspect]
     Active Substance: TRAMETINIB
     Indication: Metastatic malignant melanoma
     Dosage: UNK
     Route: 065
     Dates: start: 202103, end: 20210503
  3. PREGABALIN [Suspect]
     Active Substance: PREGABALIN
     Indication: Neuropathy peripheral
     Dosage: UNK
     Route: 065
  4. PREGABALIN [Suspect]
     Active Substance: PREGABALIN
     Dosage: 75 MG, BID
     Route: 065
  5. PREGABALIN [Suspect]
     Active Substance: PREGABALIN
     Dosage: 75 MG (IN THE EVENING)
     Route: 065

REACTIONS (12)
  - Neuropathy peripheral [Recovering/Resolving]
  - Small fibre neuropathy [Recovering/Resolving]
  - Polyradiculoneuropathy [Recovering/Resolving]
  - Demyelination [Recovering/Resolving]
  - Axonal neuropathy [Recovering/Resolving]
  - Autonomic nervous system imbalance [Recovering/Resolving]
  - Speech latency [Recovering/Resolving]
  - Carpal tunnel syndrome [Recovering/Resolving]
  - Insomnia [Unknown]
  - Burning sensation [Recovering/Resolving]
  - Pain in extremity [Recovering/Resolving]
  - Weight increased [Unknown]

NARRATIVE: CASE EVENT DATE: 20210422
